FAERS Safety Report 8550169-2 (Version None)
Quarter: 2012Q3

REPORT INFORMATION
  Report Type: 
  Country: None (occurrence: None)
  Receive Date: 20120730
  Receipt Date: 20120717
  Transmission Date: 20120928
  Serious: Yes (Hospitalization)
  Sender: FDA-Public Use
  Company Number: US-ACTELION-A-NJ2012-69022

PATIENT
  Age: 37 Year
  Sex: Female

DRUGS (5)
  1. COUMADIN [Concomitant]
  2. SILDENAFIL [Concomitant]
  3. REMODULIN [Concomitant]
  4. PLAVIX [Concomitant]
  5. TRACLEER [Suspect]
     Indication: PULMONARY ARTERIAL HYPERTENSION
     Dosage: UNK
     Route: 048

REACTIONS (1)
  - PULMONARY OEDEMA [None]
